FAERS Safety Report 8212276-3 (Version None)
Quarter: 2012Q1

REPORT INFORMATION
  Report Type: 
  Country: None (occurrence: None)
  Receive Date: 20120315
  Receipt Date: 20120228
  Transmission Date: 20120608
  Serious: Yes (Other)
  Sender: FDA-Public Use
  Company Number: DE-ROCHE-1014776

PATIENT
  Sex: Female

DRUGS (4)
  1. JUNIK [Concomitant]
     Dates: start: 20020101
  2. XOLAIR [Suspect]
     Indication: ASTHMA
     Route: 058
     Dates: start: 20060220, end: 20110509
  3. SALBUTAMOL [Concomitant]
     Dates: start: 20000101
  4. HYDROCORTISONE [Concomitant]
     Dates: start: 20030101

REACTIONS (11)
  - ANAPHYLACTIC REACTION [None]
  - PRURITUS [None]
  - ASTHMA [None]
  - UPPER AIRWAY OBSTRUCTION [None]
  - DIZZINESS [None]
  - COUGH [None]
  - FOOD ALLERGY [None]
  - ERYTHEMA [None]
  - SEASONAL ALLERGY [None]
  - DRUG HYPERSENSITIVITY [None]
  - RESPIRATORY FAILURE [None]
